FAERS Safety Report 6572723-X (Version None)
Quarter: 2010Q1

REPORT INFORMATION
  Report Type: 
  Country: None (occurrence: None)
  Receive Date: 20100205
  Receipt Date: 20100126
  Transmission Date: 20100710
  Serious: Yes (Hospitalization, Other)
  Sender: FDA-Public Use
  Company Number: DE-ABBOTT-08P-062-0479347-00

PATIENT
  Sex: Female
  Weight: 110 kg

DRUGS (7)
  1. HUMIRA [Suspect]
     Indication: RHEUMATOID ARTHRITIS
     Route: 058
     Dates: start: 20061201
  2. METHOTREXATE [Concomitant]
     Indication: RHEUMATOID ARTHRITIS
     Dates: start: 20030101
  3. METHOTREXATE [Concomitant]
     Dates: start: 20040101
  4. CORTISON [Concomitant]
     Indication: RHEUMATOID ARTHRITIS
  5. ARAVA [Concomitant]
     Indication: RHEUMATOID ARTHRITIS
  6. LEFLUNOMIDE [Concomitant]
     Indication: RHEUMATOID ARTHRITIS
     Dates: end: 20090101
  7. LEFLUNOMIDE [Concomitant]
     Dates: start: 20090101

REACTIONS (3)
  - ACCIDENT [None]
  - POSTOPERATIVE WOUND COMPLICATION [None]
  - TENDON RUPTURE [None]
